FAERS Safety Report 5375989-7 (Version None)
Quarter: 2007Q2

REPORT INFORMATION
  Report Type: 
  Country: None (occurrence: None)
  Receive Date: 20070627
  Receipt Date: 20070627
  Transmission Date: 20071010
  Serious: No
  Sender: FDA-Public Use
  Company Number: None

PATIENT
  Age: 59 Year
  Sex: Male

DRUGS (4)
  1. CYMBALTA [Suspect]
     Dosage: 30 MG/D
     Dates: start: 20060707, end: 20060717
  2. ASPIRIN [Concomitant]
  3. TOPROL-XL [Concomitant]
  4. DIOVAN [Concomitant]

REACTIONS (2)
  - HEPATITIS CHOLESTATIC [None]
  - LIVER DISORDER [None]
